FAERS Safety Report 6564528-0 (Version None)
Quarter: 2010Q1

REPORT INFORMATION
  Report Type: 
  Country: None (occurrence: None)
  Receive Date: 20100201
  Receipt Date: 20100119
  Transmission Date: 20100710
  Serious: Yes (Death, Other)
  Sender: FDA-Public Use
  Company Number: US-ELI_LILLY_AND_COMPANY-US200912003353

PATIENT
  Sex: Female

DRUGS (17)
  1. FORTEO [Suspect]
     Indication: OSTEOPOROSIS
     Dates: start: 20081218
  2. EVISTA [Concomitant]
     Dosage: 60 MG, DAILY (1/D)
  3. SYNTHROID [Concomitant]
     Dosage: 0.1 MG, DAILY (1/D)
  4. LANOXIN [Concomitant]
     Dosage: 0.125 MG, DAILY (1/D)
  5. ADVAIR DISKUS 100/50 [Concomitant]
  6. XOPENEX [Concomitant]
     Dosage: UNK, 4/D
  7. TYLENOL                                 /SCH/ [Concomitant]
     Dosage: 1000 MG, AS NEEDED
  8. GLUCOPHAGE [Concomitant]
     Dosage: 500 MG, DAILY (1/D)
  9. XANAX [Concomitant]
     Dosage: 0.25 MG, 3/D
  10. CARDIZEM [Concomitant]
     Dosage: UNK, DAILY (1/D)
  11. K-DUR [Concomitant]
     Dosage: 10 MEQ, 2/D
  12. VITAMIN D [Concomitant]
     Dosage: 2000 IU, DAILY (1/D)
  13. MUCINEX [Concomitant]
     Dosage: 600 MG, 2/D
  14. ALLEGRA [Concomitant]
     Dosage: 180 MG, DAILY (1/D)
  15. ZOCOR [Concomitant]
     Dosage: 40 MG, DAILY (1/D)
  16. DOXYCYCLINE [Concomitant]
     Dosage: 100 MG, 2/D
     Dates: start: 20090910
  17. ALEVE (CAPLET) [Concomitant]
     Dosage: 440 MG, 2/D

REACTIONS (3)
  - CARDIAC ARREST [None]
  - CARDIO-RESPIRATORY ARREST [None]
  - VENTRICULAR TACHYCARDIA [None]
